FAERS Safety Report 7468337-X (Version None)
Quarter: 2011Q2

REPORT INFORMATION
  Report Type: 
  Country: None (occurrence: None)
  Receive Date: 20110509
  Receipt Date: 20110428
  Transmission Date: 20111010
  Serious: Yes (Death, Hospitalization)
  Sender: FDA-Public Use
  Company Number: NL-CELGENEUS-114-21880-11022219

PATIENT
  Sex: Male

DRUGS (10)
  1. REVLIMID [Suspect]
     Indication: MYELOFIBROSIS
     Dosage: 10 MILLIGRAM
     Route: 048
     Dates: start: 20100901, end: 20110213
  2. QUINAPRIL [Concomitant]
     Dosage: 40 MILLIGRAM
     Route: 048
  3. LANTUS [Concomitant]
     Route: 065
  4. INSULIN [Concomitant]
     Route: 065
  5. DICLOFENAC [Concomitant]
     Route: 065
  6. METFORMIN [Concomitant]
     Dosage: 500 MILLIGRAM
     Route: 048
  7. METOPROLOL TARTRATE [Concomitant]
     Dosage: 100 MILLIGRAM
     Route: 048
  8. OMEPRAZOLE [Concomitant]
     Route: 065
  9. AMILORID/HCTZ [Concomitant]
     Dosage: 2.5/25 MG
     Route: 048
  10. PREDNISONE [Concomitant]
     Indication: MYELOFIBROSIS
     Dosage: 5 MILLIGRAM
     Route: 065

REACTIONS (4)
  - MULTI-ORGAN FAILURE [None]
  - STAPHYLOCOCCAL SEPSIS [None]
  - NEUTROPENIA [None]
  - THROMBOCYTOPENIA [None]
